FAERS Safety Report 7687251-8 (Version None)
Quarter: 2011Q3

REPORT INFORMATION
  Report Type: 
  Country: None (occurrence: None)
  Receive Date: 20110816
  Receipt Date: 20110803
  Transmission Date: 20111222
  Serious: Yes (Hospitalization)
  Sender: FDA-Public Use
  Company Number: US-MYLANLABS-2011S1016101

PATIENT
  Age: 43 Year
  Sex: Male

DRUGS (2)
  1. RISPERDAL CONSTA [Interacting]
     Dosage: 37.5MG
     Route: 065
  2. TERBINAFINE HCL [Suspect]
     Indication: NAIL INFECTION
     Route: 065

REACTIONS (2)
  - PSYCHOTIC BEHAVIOUR [None]
  - DRUG INTERACTION [None]
